FAERS Safety Report 10238287 (Version 1)
Quarter: 2014Q2

REPORT INFORMATION
  Report Type: Spontaneous
  Country: US (occurrence: US)
  Receive Date: 20140616
  Receipt Date: 20140616
  Transmission Date: 20141212
  Serious: No
  Sender: FDA-Public Use
  Company Number: US-PFIZER INC-2014160422

PATIENT
  Age: 66 Year
  Sex: Female
  Weight: 51.66 kg

DRUGS (3)
  1. CAMPTOSAR [Suspect]
     Indication: COLORECTAL CANCER
     Dosage: 280 MG, CYCLIC (EVERY TWO WEEKS BY GIVING 180MG/M2 INTRAVENOUS INFUSION OVER 90MINUTES)
     Route: 042
     Dates: start: 20140506, end: 2014
  2. CAMPTOSAR [Suspect]
     Dosage: 155 MG, WEEKLY (GIVING 100MG/M2 INTRAVENOUS INFUSION OVER 90MINUTES)
     Route: 042
     Dates: start: 2014
  3. ERBITUX [Concomitant]
     Dosage: 385 MG, WEEKLY
     Route: 042

REACTIONS (5)
  - Diarrhoea [Recovered/Resolved]
  - White blood cell count increased [Unknown]
  - Platelet count increased [Unknown]
  - Blood potassium abnormal [Unknown]
  - Blood creatinine decreased [Unknown]
